FAERS Safety Report 14986979 (Version 1)
Quarter: 2018Q2

REPORT INFORMATION
  Report Type: Spontaneous
  Country: GB (occurrence: GB)
  Receive Date: 20180608
  Receipt Date: 20180608
  Transmission Date: 20180711
  Serious: Yes (Other)
  Sender: FDA-Public Use
  Company Number: GB-TEVA-2018-GB-903072

PATIENT
  Age: 35 Year
  Sex: Male
  Weight: 82 kg

DRUGS (2)
  1. CETIRIZINE DIHYDROCHLORIDE [Concomitant]
     Active Substance: CETIRIZINE HYDROCHLORIDE
     Route: 065
  2. CO-AMOXICLAV [Suspect]
     Active Substance: AMOXICILLIN\CLAVULANIC ACID
     Indication: EAR INFECTION
     Dosage: 1500 MILLIGRAM DAILY;
     Route: 048
     Dates: start: 20180323, end: 20180329

REACTIONS (4)
  - Anxiety [Unknown]
  - Malaise [Unknown]
  - Dizziness [Not Recovered/Not Resolved]
  - Feeling abnormal [Unknown]

NARRATIVE: CASE EVENT DATE: 20180329
